FAERS Safety Report 9995080 (Version 4)
Quarter: 2014Q2

REPORT INFORMATION
  Report Type: Report from Study
  Country: CA (occurrence: CA)
  Receive Date: 20140311
  Receipt Date: 20140521
  Transmission Date: 20141212
  Serious: Yes (Death, Hospitalization, Other)
  Sender: FDA-Public Use
  Company Number: CA-JNJFOC-20140215445

PATIENT
  Age: 29 Year
  Sex: Male
  Weight: 75 kg

DRUGS (22)
  1. REMICADE [Suspect]
     Indication: CROHN^S DISEASE
     Route: 042
     Dates: start: 20140107
  2. REMICADE [Suspect]
     Indication: CROHN^S DISEASE
     Route: 042
     Dates: start: 201306
  3. CLOZARIL [Suspect]
     Indication: SCHIZOPHRENIA
     Dosage: HOURS OF SLEEP
     Route: 048
     Dates: start: 20020403, end: 20140226
  4. NOZINAN [Concomitant]
     Dosage: 50-100MG AS NEEDED
     Route: 065
  5. FERROUS SULPHATE [Concomitant]
     Route: 065
  6. MUTIVITAMINS [Concomitant]
     Route: 065
  7. EPIVAL [Concomitant]
     Dosage: 1125 MH PO HOUR OF SLEEP (HS)
     Route: 048
  8. EPIVAL [Concomitant]
     Dosage: AT HOURS OF SLEEP
     Route: 048
  9. APO-METHOPRAZINE [Concomitant]
     Dosage: 50-100 MG AS NECESSARY
     Route: 065
  10. IRON [Concomitant]
     Dosage: 50-100 MG
     Route: 065
  11. IMODIUM [Concomitant]
     Dosage: 50-100 MG
     Route: 065
  12. ASACOL [Concomitant]
     Dosage: 6 TABS/DAY
     Route: 065
  13. IMURAN [Concomitant]
     Dosage: 2.5 MG/KG
     Route: 065
  14. IMURAN [Concomitant]
     Route: 065
  15. IMURAN [Concomitant]
     Dosage: 50-100 MG
     Route: 065
  16. CENTRUM (MINERALS NOS, VITAMINS NOS) [Concomitant]
     Dosage: 2 IN AM
     Route: 065
  17. SEROQUEL [Concomitant]
     Dosage: 25 MG T-TT PRN (AS NECESSARY)
     Route: 048
  18. AZATHIOPRINE [Concomitant]
     Dosage: 50 MG TT QD
     Route: 065
  19. LOPERAMIDE [Concomitant]
     Dosage: PRN (AS NECESSARY)
     Route: 065
  20. ELTROXIN [Concomitant]
     Route: 048
  21. B50 [Concomitant]
     Route: 065
  22. SEROQUEL XR [Concomitant]
     Dosage: +25 MG T-TT PRN
     Route: 048

REACTIONS (3)
  - Neuroleptic malignant syndrome [Fatal]
  - Renal failure [Unknown]
  - Disseminated tuberculosis [Not Recovered/Not Resolved]
